FAERS Safety Report 9607836 (Version 1)
Quarter: 2013Q4

REPORT INFORMATION
  Report Type: Spontaneous
  Country: FR (occurrence: None)
  Receive Date: 20131004
  Receipt Date: 20131004
  Transmission Date: 20140711
  Serious: No
  Sender: FDA-Public Use
  Company Number: 2013P1019560

PATIENT
  Sex: 0

DRUGS (2)
  1. DONEPEZIL [Suspect]
  2. BISOPROLOL [Suspect]

REACTIONS (2)
  - Drug interaction [None]
  - Bradycardia [None]
